FAERS Safety Report 6179388-X (Version None)
Quarter: 2009Q2

REPORT INFORMATION
  Report Type: 
  Country: None (occurrence: None)
  Receive Date: 20090501
  Receipt Date: 20090501
  Transmission Date: 20091009
  Serious: Yes (Hospitalization)
  Sender: FDA-Public Use
  Company Number: None

PATIENT
  Sex: Male
  Weight: 75.5 kg

DRUGS (2)
  1. CYCLOPHOSPHAMIDE [Suspect]
     Indication: ALLOGENIC BONE MARROW TRANSPLANTATION THERAPY
     Dosage: 4.625 MG IV DAILY X 2 DOSES
     Route: 042
     Dates: start: 20090221
  2. CYCLOPHOSPHAMIDE [Suspect]
     Indication: ALLOGENIC BONE MARROW TRANSPLANTATION THERAPY
     Dosage: 4.625 MG IV DAILY X 2 DOSES
     Route: 042
     Dates: start: 20090222

REACTIONS (2)
  - FLUSHING [None]
  - SINUS HEADACHE [None]
